FAERS Safety Report 6734793-5 (Version None)
Quarter: 2010Q2

REPORT INFORMATION
  Report Type: 
  Country: None (occurrence: None)
  Receive Date: 20100521
  Receipt Date: 20100513
  Transmission Date: 20101027
  Serious: Yes (Hospitalization)
  Sender: FDA-Public Use
  Company Number: US-BIOGENIDEC-2006BI000192

PATIENT
  Age: 56 Year
  Sex: Female

DRUGS (3)
  1. AVONEX [Suspect]
     Indication: MULTIPLE SCLEROSIS
     Route: 030
     Dates: start: 20010705
  2. AVONEX [Suspect]
     Route: 030
     Dates: start: 20050102, end: 20051209
  3. AVONEX [Suspect]
     Route: 030
     Dates: start: 20090101, end: 20090201

REACTIONS (4)
  - CHOLECYSTITIS INFECTIVE [None]
  - CHOLELITHIASIS [None]
  - GASTROINTESTINAL INFECTION [None]
  - PAIN [None]
